FAERS Safety Report 11311234 (Version 1)
Quarter: 2015Q3

REPORT INFORMATION
  Report Type: Spontaneous
  Country: KR (occurrence: KR)
  Receive Date: 20150727
  Receipt Date: 20150727
  Transmission Date: 20151125
  Serious: Yes (Hospitalization)
  Sender: FDA-Public Use
  Company Number: KR-AMGEN-KORCT2015075235

PATIENT
  Age: 69 Year
  Sex: Male
  Weight: 72.5 kg

DRUGS (8)
  1. ETOPOSIDE. [Concomitant]
     Active Substance: ETOPOSIDE
     Indication: NON-HODGKIN^S LYMPHOMA
     Dosage: 137 MG, UNK
     Route: 042
     Dates: start: 20150606, end: 20150606
  2. G-LASTA [Suspect]
     Active Substance: PEGFILGRASTIM
     Indication: FEBRILE NEUTROPENIA
     Dosage: 6 MG, 1X/3WEEKS
     Route: 058
     Dates: start: 20150609
  3. IFOSFAMIDE. [Concomitant]
     Active Substance: IFOSFAMIDE
     Indication: NON-HODGKIN^S LYMPHOMA
     Dosage: 1 G, UNK
     Route: 042
     Dates: start: 20150607, end: 20150607
  4. CARBOPLATIN. [Concomitant]
     Active Substance: CARBOPLATIN
     Indication: NON-HODGKIN^S LYMPHOMA
     Dosage: 358 MG, UNK
     Route: 042
     Dates: start: 20150607, end: 20150607
  5. ETOPOSIDE. [Concomitant]
     Active Substance: ETOPOSIDE
     Dosage: 137 MG, UNK
     Route: 042
     Dates: start: 20150702, end: 20150702
  6. G-LASTA [Suspect]
     Active Substance: PEGFILGRASTIM
     Dosage: 6 MG, 1X/3WEEKS
     Route: 058
     Dates: start: 20150704
  7. IFOSFAMIDE. [Concomitant]
     Active Substance: IFOSFAMIDE
     Dosage: 6.86 G, UNK
     Route: 042
     Dates: start: 20150702, end: 20150702
  8. CARBOPLATIN. [Concomitant]
     Active Substance: CARBOPLATIN
     Dosage: 385 MG, UNK
     Route: 042
     Dates: start: 20150702, end: 20150702

REACTIONS (1)
  - VIIth nerve paralysis [Not Recovered/Not Resolved]

NARRATIVE: CASE EVENT DATE: 20150717
